FAERS Safety Report 4309711-X (Version None)
Quarter: 2004Q1

REPORT INFORMATION
  Report Type: 
  Country: None (occurrence: None)
  Receive Date: 20040301
  Receipt Date: 20040219
  Transmission Date: 20041129
  Serious: Yes (Life-Threatening, Hospitalization)
  Sender: FDA-Public Use
  Company Number: 200410131BNE

PATIENT
  Age: 84 Year
  Sex: Male
  Weight: 75 kg

DRUGS (6)
  1. ASPIRIN [Suspect]
     Indication: CORONARY ARTERY DISEASE
     Dosage: SEE IMAGE
     Route: 048
     Dates: end: 20040120
  2. VIOXX [Suspect]
     Indication: GOUT
     Dosage: 25 MG, TOTAL DAILY; ORAL
     Route: 048
     Dates: end: 20040120
  3. ALLOPURINOL [Concomitant]
  4. INDORAMIN [Concomitant]
  5. FRUSEMIDE [Concomitant]
  6. LISINOPRIL [Concomitant]

REACTIONS (4)
  - DUODENAL ULCER [None]
  - GASTRIC ULCER [None]
  - HAEMATEMESIS [None]
  - OESOPHAGEAL ULCER [None]
